FAERS Safety Report 23601086 (Version 2)
Quarter: 2024Q1

REPORT INFORMATION
  Report Type: Spontaneous
  Country: US (occurrence: US)
  Receive Date: 20240306
  Receipt Date: 20240325
  Transmission Date: 20240410
  Serious: No
  Sender: FDA-Public Use
  Company Number: US-Calliditas-2024CAL00301

PATIENT
  Age: 42 Year
  Sex: Male

DRUGS (4)
  1. TARPEYO [Suspect]
     Active Substance: BUDESONIDE
     Indication: Haematuria
     Dosage: 16 MG (4 MG CAPSULES) ONCE DAILY
     Route: 048
     Dates: start: 20231219
  2. ALLOPURINOL [Concomitant]
     Active Substance: ALLOPURINOL
  3. JARDIANCE [Concomitant]
     Active Substance: EMPAGLIFLOZIN
  4. LOSARTAN [Concomitant]
     Active Substance: LOSARTAN

REACTIONS (3)
  - Food poisoning [Recovered/Resolved]
  - Product dose omission issue [Recovered/Resolved]
  - Vomiting [Recovered/Resolved]

NARRATIVE: CASE EVENT DATE: 20240219
